FAERS Safety Report 8201490-9 (Version None)
Quarter: 2012Q1

REPORT INFORMATION
  Report Type: 
  Country: None (occurrence: None)
  Receive Date: 20120307
  Receipt Date: 20120221
  Transmission Date: 20120608
  Serious: Yes (Hospitalization, Disabling)
  Sender: FDA-Public Use
  Company Number: TPG2012A00155

PATIENT
  Age: 67 Year
  Sex: Male

DRUGS (7)
  1. ALLOPURINOL [Concomitant]
  2. GLUCOPHAGE [Concomitant]
  3. GLUCOBAY [Concomitant]
  4. ACTOS [Suspect]
     Indication: TYPE 2 DIABETES MELLITUS
     Dosage: 30 MG (30 MG, 1 IN 1 D)
     Route: 048
     Dates: start: 20061001
  5. CANDESARTAN CILEXETIL AND HYDROCHLOROTHIAZIDE [Concomitant]
  6. DIAMICRON (GLICLAZIDE) [Concomitant]
  7. SIMVASTATIN [Concomitant]

REACTIONS (6)
  - METASTASES TO ADRENALS [None]
  - DYSURIA [None]
  - BLADDER CANCER [None]
  - HAEMATURIA [None]
  - METASTASES TO LUNG [None]
  - MICTURITION URGENCY [None]
